FAERS Safety Report 6784832-0 (Version None)
Quarter: 2010Q2

REPORT INFORMATION
  Report Type: 
  Country: None (occurrence: None)
  Receive Date: 20100622
  Receipt Date: 20090731
  Transmission Date: 20101027
  Serious: Yes (Death, Other)
  Sender: FDA-Public Use
  Company Number: TW-GENZYME-THYM-1001136

PATIENT
  Age: 21 Year
  Sex: Female

DRUGS (6)
  1. THYMOGLOBULIN [Suspect]
     Indication: STEM CELL TRANSPLANT
     Dosage: UNK UNK, UNK
     Route: 042
  2. FLUDARABINE [Concomitant]
     Indication: BONE MARROW CONDITIONING REGIMEN
     Dosage: UNK UNK, UNK
  3. CYTARABINE [Concomitant]
     Indication: BONE MARROW CONDITIONING REGIMEN
     Dosage: UNK UNK, UNK
  4. GRANULOCYTE COLONY STIMULATING FACTOR [Concomitant]
     Indication: BONE MARROW CONDITIONING REGIMEN
     Dosage: UNK UNK, UNK
  5. CYCLOSPORINE [Concomitant]
     Indication: IMMUNOSUPPRESSION
     Dosage: UNK UNK, UNK
  6. STEROID [Concomitant]
     Indication: IMMUNOSUPPRESSION
     Dosage: UNK UNK, UNK

REACTIONS (1)
  - EPSTEIN-BARR VIRUS ASSOCIATED LYMPHOPROLIFERATIVE DISORDER [None]
